FAERS Safety Report 18118655 (Version 1)
Quarter: 2020Q3

REPORT INFORMATION
  Report Type: Spontaneous
  Country: US (occurrence: US)
  Receive Date: 20200806
  Receipt Date: 20200806
  Transmission Date: 20201103
  Serious: No
  Sender: FDA-Public Use
  Company Number: US-PFIZER INC-2020297206

PATIENT
  Age: 54 Year
  Sex: Female

DRUGS (2)
  1. BRAFTOVI [Suspect]
     Active Substance: ENCORAFENIB
     Indication: MALIGNANT MELANOMA
     Dosage: UNK, DAILY (BRAFTOVI ? 450 QD)
     Dates: start: 20200318
  2. MEKTOVI [Suspect]
     Active Substance: BINIMETINIB
     Indication: MALIGNANT MELANOMA
     Dosage: UNK, 2X/DAY (MEKTOVI ? 45MG BID)
     Dates: start: 20200318

REACTIONS (1)
  - Blood count abnormal [Unknown]
